FAERS Safety Report 16744270 (Version 5)
Quarter: 2020Q2

REPORT INFORMATION
  Report Type: Spontaneous
  Country: PT (occurrence: PT)
  Receive Date: 20190827
  Receipt Date: 20200409
  Transmission Date: 20200713
  Serious: Yes (Hospitalization, Other)
  Sender: FDA-Public Use
  Company Number: PT-AUROBINDO-AUR-APL-2019-056269

PATIENT
  Age: 45 Year
  Sex: Female

DRUGS (3)
  1. ALPRAZOLAM TABLETS [Suspect]
     Active Substance: ALPRAZOLAM
     Indication: ANXIETY
     Dosage: 1 MILLIGRAM, ONCE A DAY
     Route: 048
  2. ALPRAZOLAM TABLETS [Suspect]
     Active Substance: ALPRAZOLAM
     Dosage: 1 MILLIGRAM, FOUR TIMES/DAY
     Route: 065
  3. DESOGESTREL [Suspect]
     Active Substance: DESOGESTREL
     Indication: CONTRACEPTION
     Dosage: 75 MICROGRAM
     Route: 065

REACTIONS (23)
  - Anxiety [Unknown]
  - Withdrawal syndrome [Recovered/Resolved]
  - Depressed mood [Unknown]
  - Tremor [Recovering/Resolving]
  - Vomiting [Unknown]
  - Hypokalaemia [Unknown]
  - Insomnia [Unknown]
  - Diarrhoea [Unknown]
  - Incoherent [Recovering/Resolving]
  - Drug withdrawal convulsions [Recovered/Resolved]
  - Myoclonus [Recovering/Resolving]
  - Drug withdrawal syndrome [Recovered/Resolved]
  - Intentional product misuse [Unknown]
  - Confusional state [Recovered/Resolved]
  - Epilepsy [Recovered/Resolved]
  - Loss of consciousness [Recovered/Resolved]
  - Drug abuse [Recovered/Resolved]
  - Gastroenteritis [Unknown]
  - Postictal state [Unknown]
  - Drug dependence [Unknown]
  - Generalised tonic-clonic seizure [Recovered/Resolved]
  - Pyrexia [Unknown]
  - Delusion [Recovered/Resolved]

NARRATIVE: CASE EVENT DATE: 2016
